FAERS Safety Report 5465569-7 (Version None)
Quarter: 2007Q3

REPORT INFORMATION
  Report Type: 
  Country: None (occurrence: None)
  Receive Date: 20070924
  Receipt Date: 20070913
  Transmission Date: 20080115
  Serious: Yes (Disabling)
  Sender: FDA-Public Use
  Company Number: AU-ASTRAZENECA-2007AP05769

PATIENT
  Age: 24534 Day
  Sex: Female

DRUGS (1)
  1. CRESTOR [Suspect]
     Indication: METABOLIC DISORDER
     Route: 048
     Dates: start: 20070628, end: 20070730

REACTIONS (2)
  - BLOOD PRESSURE FLUCTUATION [None]
  - HYPERTENSION [None]
